FAERS Safety Report 24777176 (Version 3)
Quarter: 2025Q1

REPORT INFORMATION
  Report Type: Spontaneous
  Country: US (occurrence: US)
  Receive Date: 20241226
  Receipt Date: 20250303
  Transmission Date: 20250408
  Serious: No
  Sender: JOHNSON AND JOHNSON
  Company Number: US-JNJFOC-20241261910

PATIENT
  Age: 41 Year
  Sex: Female

DRUGS (1)
  1. OPSUMIT [Suspect]
     Active Substance: MACITENTAN
     Indication: Pulmonary hypertension
     Route: 048
     Dates: start: 20241005

REACTIONS (2)
  - Bronchitis [Unknown]
  - Anaemia [Unknown]

NARRATIVE: CASE EVENT DATE: 20241201
